FAERS Safety Report 20015462 (Version 1)
Quarter: 2021Q4

REPORT INFORMATION
  Report Type: Spontaneous
  Country: US (occurrence: None)
  Receive Date: 20211031
  Receipt Date: 20211031
  Transmission Date: 20220303
  Serious: Yes (Life-Threatening, Hospitalization, Disabling, Other)
  Sender: FDA-Public Use
  Company Number: None

PATIENT
  Age: 19 Year
  Sex: Male
  Weight: 65.25 kg

DRUGS (6)
  1. .DELTA.8-TETRAHYDROCANNABINOL\HERBALS [Suspect]
     Active Substance: .DELTA.8-TETRAHYDROCANNABINOL\HERBALS
     Indication: Anxiety
     Dates: start: 20210701, end: 20211030
  2. HALDOL [Suspect]
     Active Substance: HALOPERIDOL
  3. OXCARBAZEPINE [Suspect]
     Active Substance: OXCARBAZEPINE
  4. TRAZODONE [Suspect]
     Active Substance: TRAZODONE HYDROCHLORIDE
  5. BENZTROPINE [Suspect]
     Active Substance: BENZTROPINE
  6. CALCIUM\VITAMIN D [Concomitant]
     Active Substance: CALCIUM\VITAMIN D

REACTIONS (5)
  - Psychotic disorder [None]
  - Hallucination [None]
  - Pyrexia [None]
  - Heart rate increased [None]
  - Mental disorder [None]

NARRATIVE: CASE EVENT DATE: 20211009
